FAERS Safety Report 6384591-X (Version None)
Quarter: 2009Q4

REPORT INFORMATION
  Report Type: 
  Country: None (occurrence: None)
  Receive Date: 20091001
  Receipt Date: 20090918
  Transmission Date: 20100525
  Serious: Yes (Other)
  Sender: FDA-Public Use
  Company Number: PHEH2009US11376

PATIENT

DRUGS (2)
  1. EXJADE [Suspect]
     Dosage: UNK, UNK
     Route: 065
  2. VIDAZA [Suspect]
     Dosage: UNK, UNK
     Route: 065

REACTIONS (2)
  - BONE MARROW FAILURE [None]
  - THROMBOCYTOPENIA [None]
